FAERS Safety Report 18918841 (Version 1)
Quarter: 2021Q1

REPORT INFORMATION
  Report Type: Spontaneous
  Country: GB (occurrence: GB)
  Receive Date: 20210220
  Receipt Date: 20210220
  Transmission Date: 20210420
  Serious: Yes (Hospitalization, Other)
  Sender: FDA-Public Use
  Company Number: GB-ROCHE-2773035

PATIENT
  Age: 58 Year
  Sex: Female

DRUGS (1)
  1. ROACTEMRA [Suspect]
     Active Substance: TOCILIZUMAB
     Indication: RHEUMATOID ARTHRITIS
     Route: 058
     Dates: start: 2020

REACTIONS (5)
  - Oropharyngeal pain [Unknown]
  - Sleep apnoea syndrome [Unknown]
  - Syncope [Unknown]
  - Tonsillitis [Unknown]
  - Myocardial infarction [Unknown]
